FAERS Safety Report 5149806-4 (Version None)
Quarter: 2006Q4

REPORT INFORMATION
  Report Type: 
  Country: None (occurrence: None)
  Receive Date: 20061108
  Receipt Date: 20061031
  Transmission Date: 20070319
  Serious: Yes (Hospitalization)
  Sender: FDA-Public Use
  Company Number: 232001

PATIENT
  Sex: Female
  Weight: 40.8 kg

DRUGS (5)
  1. RITUXAN [Suspect]
     Indication: RHEUMATOID ARTHRITIS
     Dosage: 1000 MG, Q2W, INTRAVENOUS
     Route: 042
     Dates: start: 20060927
  2. BENADRYL [Concomitant]
  3. DECADRON [Concomitant]
  4. ACETAMINOPHEN AND HYDROCODONE BITARTRATE [Concomitant]
  5. PREDNISONE TAB [Concomitant]

REACTIONS (10)
  - ABNORMAL BEHAVIOUR [None]
  - ARTHRALGIA [None]
  - CHEST DISCOMFORT [None]
  - DEHYDRATION [None]
  - HALLUCINATION [None]
  - HOT FLUSH [None]
  - INSOMNIA [None]
  - NAUSEA [None]
  - OEDEMA PERIPHERAL [None]
  - VOMITING [None]
